FAERS Safety Report 15595046 (Version 1)
Quarter: 2018Q4

REPORT INFORMATION
  Report Type: Spontaneous
  Country: DE (occurrence: DE)
  Receive Date: 20181107
  Receipt Date: 20181107
  Transmission Date: 20190205
  Serious: Yes (Death)
  Sender: FDA-Public Use
  Company Number: DE-009507513-1810DEU013979

PATIENT
  Age: 74 Year
  Sex: Male
  Weight: 76 kg

DRUGS (6)
  1. PIPERACILLIN. [Concomitant]
     Active Substance: PIPERACILLIN SODIUM
     Indication: PNEUMONIA
     Dosage: 1-1-1
     Route: 042
     Dates: start: 20180908, end: 20180909
  2. KEYTRUDA [Suspect]
     Active Substance: PEMBROLIZUMAB
     Indication: NON-SMALL CELL LUNG CANCER
     Dosage: 200 MG
     Route: 042
     Dates: start: 20180820, end: 20180909
  3. PREDNISOLON [Concomitant]
     Active Substance: PREDNISOLONE
     Dosage: 1-0-0
     Route: 048
     Dates: start: 20180827, end: 20180909
  4. RAMIPRIL. [Concomitant]
     Active Substance: RAMIPRIL
     Indication: HYPERTENSION
     Dosage: 1-0-0
     Route: 048
     Dates: end: 20180807
  5. ASPIRIN. [Concomitant]
     Active Substance: ASPIRIN
     Dosage: 0-1-0
     Route: 048
     Dates: start: 20180726, end: 20180808
  6. TAZOBACTAM [Concomitant]
     Active Substance: TAZOBACTAM
     Indication: PNEUMONIA
     Dosage: 1-1-1
     Route: 042
     Dates: end: 20180909

REACTIONS (4)
  - Multiple organ dysfunction syndrome [Fatal]
  - Ammonia abnormal [Unknown]
  - Coagulation test abnormal [Unknown]
  - Liver function test abnormal [Unknown]

NARRATIVE: CASE EVENT DATE: 20180820
